FAERS Safety Report 22942613 (Version 9)
Quarter: 2024Q2

REPORT INFORMATION
  Report Type: Report from Study
  Country: BR (occurrence: BR)
  Receive Date: 20230914
  Receipt Date: 20240628
  Transmission Date: 20240716
  Serious: Yes (Life-Threatening, Other)
  Sender: FDA-Public Use
  Company Number: BR-002147023-NVSC2023BR092308

PATIENT
  Age: 73 Year
  Sex: Female
  Weight: 71 kg

DRUGS (12)
  1. KISQALI [Suspect]
     Active Substance: RIBOCICLIB
     Indication: Breast cancer
     Dosage: 3 DOSAGE FORM, QD
     Route: 065
     Dates: start: 20230331
  2. KISQALI [Suspect]
     Active Substance: RIBOCICLIB
     Dosage: UNK
     Route: 065
  3. KISQALI [Suspect]
     Active Substance: RIBOCICLIB
     Dosage: 3 DOSAGE FORM (STARTED 5 MONTHS AGO)
     Route: 065
  4. KISQALI [Suspect]
     Active Substance: RIBOCICLIB
     Dosage: 2 DOSAGE FORM
     Route: 065
  5. KISQALI [Suspect]
     Active Substance: RIBOCICLIB
     Dosage: UNK
     Route: 065
  6. KISQALI [Suspect]
     Active Substance: RIBOCICLIB
     Dosage: UNK
     Route: 065
  7. KISQALI [Suspect]
     Active Substance: RIBOCICLIB
     Dosage: UNK
     Route: 065
  8. KISQALI [Suspect]
     Active Substance: RIBOCICLIB
     Dosage: UNK
     Route: 065
  9. KISQALI [Suspect]
     Active Substance: RIBOCICLIB
     Dosage: UNK
     Route: 065
     Dates: start: 20240525
  10. ANASTROZOLE [Suspect]
     Active Substance: ANASTROZOLE
     Indication: Product used for unknown indication
     Dosage: UNK
     Route: 065
  11. ANASTROZOLE [Concomitant]
     Active Substance: ANASTROZOLE
     Indication: Product used for unknown indication
     Dosage: UNK
     Route: 065
  12. VITAMINS NOS [Concomitant]
     Active Substance: VITAMINS
     Indication: Product used for unknown indication
     Dosage: UNK
     Route: 065

REACTIONS (53)
  - Feeling abnormal [Recovered/Resolved]
  - Hypothermia [Recovering/Resolving]
  - Metastases to lung [Not Recovered/Not Resolved]
  - Metastases to the mediastinum [Not Recovered/Not Resolved]
  - Pneumonia [Recovering/Resolving]
  - Shock [Unknown]
  - Pulmonary mass [Unknown]
  - Breast mass [Unknown]
  - Lymphadenopathy [Unknown]
  - Nodule [Unknown]
  - Breast cancer [Not Recovered/Not Resolved]
  - Malignant neoplasm progression [Not Recovered/Not Resolved]
  - Nail disorder [Recovering/Resolving]
  - Skin plaque [Recovering/Resolving]
  - Taste disorder [Unknown]
  - Somnolence [Recovered/Resolved]
  - Muscle spasms [Unknown]
  - Decreased appetite [Recovering/Resolving]
  - Pruritus [Recovering/Resolving]
  - Myalgia [Not Recovered/Not Resolved]
  - Defaecation disorder [Not Recovered/Not Resolved]
  - Blood urea increased [Unknown]
  - Visual impairment [Not Recovered/Not Resolved]
  - Arthralgia [Not Recovered/Not Resolved]
  - Nausea [Recovered/Resolved]
  - Vomiting [Recovered/Resolved]
  - Fatigue [Recovered/Resolved]
  - Cough [Recovering/Resolving]
  - Nausea [Recovering/Resolving]
  - Parosmia [Unknown]
  - Abdominal discomfort [Recovered/Resolved]
  - Sluggishness [Recovered/Resolved with Sequelae]
  - Weight decreased [Recovered/Resolved]
  - Pain [Unknown]
  - Vomiting [Unknown]
  - Blood creatinine increased [Unknown]
  - Blood urea decreased [Unknown]
  - Asthenia [Unknown]
  - Blood creatinine decreased [Unknown]
  - Platelet count decreased [Recovered/Resolved]
  - Decreased immune responsiveness [Recovering/Resolving]
  - White blood cell count decreased [Recovered/Resolved]
  - Malaise [Unknown]
  - Hypometabolism [Recovering/Resolving]
  - Immune system disorder [Recovering/Resolving]
  - Feeling abnormal [Recovering/Resolving]
  - Platelet count decreased [Recovering/Resolving]
  - Dysgeusia [Recovering/Resolving]
  - Blood cholesterol increased [Recovering/Resolving]
  - Alopecia [Recovering/Resolving]
  - Ageusia [Recovering/Resolving]
  - Drug ineffective [Unknown]
  - Spinal pain [Unknown]

NARRATIVE: CASE EVENT DATE: 20230401
